FAERS Safety Report 9854210 (Version 2)
Quarter: 2014Q1

REPORT INFORMATION
  Report Type: Spontaneous
  Country: IT (occurrence: IT)
  Receive Date: 20140130
  Receipt Date: 20140130
  Transmission Date: 20141002
  Serious: Yes (Hospitalization)
  Sender: FDA-Public Use
  Company Number: IT-ROCHE-1336129

PATIENT
  Age: 68 Year
  Sex: Female

DRUGS (5)
  1. VALIUM [Suspect]
     Indication: DEPRESSION
     Route: 048
     Dates: start: 20131231, end: 20131231
  2. OPTALIDON SPECIAL NOC [Concomitant]
  3. CYMBALTA [Concomitant]
  4. CIPRALEX [Concomitant]
  5. LENDORMIN [Concomitant]

REACTIONS (1)
  - Sopor [Recovered/Resolved]
